FAERS Safety Report 9675382 (Version 1)
Quarter: 2013Q4

REPORT INFORMATION
  Report Type: Spontaneous
  Country: FR (occurrence: FR)
  Receive Date: 20131107
  Receipt Date: 20131107
  Transmission Date: 20140711
  Serious: Yes (Hospitalization)
  Sender: FDA-Public Use
  Company Number: FR-SA-2013SA111205

PATIENT
  Age: 25 Year
  Sex: Male

DRUGS (16)
  1. EVOLTRA [Suspect]
     Indication: ACUTE MYELOID LEUKAEMIA
     Route: 042
     Dates: start: 20110708, end: 20110712
  2. ZOPHREN [Suspect]
     Indication: PRODUCT USED FOR UNKNOWN INDICATION
     Route: 065
     Dates: start: 20110708, end: 20110713
  3. ARACYTINE [Suspect]
     Indication: ACUTE MYELOID LEUKAEMIA
     Dosage: FORM:LYOPHYLISATE FOR PARENTRAL USE?FREQUENCY: 1,9 G (1,9, 1IN 1 DAY)
     Route: 042
     Dates: start: 20110708, end: 20110712
  4. EMEND [Suspect]
     Indication: PRODUCT USED FOR UNKNOWN INDICATION
     Route: 048
     Dates: start: 20110709, end: 20110709
  5. EMEND [Suspect]
     Indication: PRODUCT USED FOR UNKNOWN INDICATION
     Route: 048
     Dates: start: 20110710, end: 20110713
  6. EMEND [Suspect]
     Indication: PRODUCT USED FOR UNKNOWN INDICATION
     Dosage: DOSE AND FREQUENCY: 125MG ON 9JUL2011 AND THEN 80 MG
     Route: 048
     Dates: start: 20110708, end: 20130708
  7. CONTRAMAL [Suspect]
     Indication: PRODUCT USED FOR UNKNOWN INDICATION
     Route: 048
     Dates: start: 20110709, end: 20110712
  8. VFEND [Suspect]
     Indication: ANTIFUNGAL PROPHYLAXIS
     Dosage: FREQUENCY: 400-0-200 (3DF, 1IN1)
     Route: 048
  9. ZELITREX [Suspect]
     Indication: ANTIVIRAL PROPHYLAXIS
     Route: 048
  10. AMIKACIN [Suspect]
     Indication: PRODUCT USED FOR UNKNOWN INDICATION
     Dosage: FORM:POWDER FOR SOLUTION FOR INJECTION
     Route: 042
     Dates: start: 20110711, end: 20110712
  11. TAZOCILLINE [Suspect]
     Indication: PRODUCT USED FOR UNKNOWN INDICATION
     Dosage: FORM: POWDER FOR SOLUTION FOR INJECTION.
     Route: 042
     Dates: start: 20110711, end: 20110712
  12. CIPROFLOXACIN [Suspect]
     Indication: PRODUCT USED FOR UNKNOWN INDICATION
     Route: 042
     Dates: start: 20110713, end: 20110715
  13. PENTACARINAT [Concomitant]
     Route: 055
     Dates: start: 20110708, end: 20110708
  14. BACTRIM [Concomitant]
     Dosage: 400/80 MG; 2 TABLETS ON MONDAY, WEDNESDAY AND FRIDAY
  15. HYDREA [Concomitant]
     Dosage: 3 TABLETS, BID
  16. FASTURTEC [Concomitant]
     Dosage: DOSE:1.5 MILLIGRAM(S)/MILLILITRE

REACTIONS (1)
  - Photosensitivity reaction [Recovered/Resolved]
